FAERS Safety Report 19188775 (Version 12)
Quarter: 2022Q3

REPORT INFORMATION
  Report Type: Report from Study
  Country: CO (occurrence: CO)
  Receive Date: 20210428
  Receipt Date: 20220916
  Transmission Date: 20221027
  Serious: Yes (Other)
  Sender: FDA-Public Use
  Company Number: NVSC2021CO085710

PATIENT
  Age: 61 Year
  Sex: Female
  Weight: 43 kg

DRUGS (7)
  1. KISQALI [Suspect]
     Active Substance: RIBOCICLIB
     Indication: Breast cancer metastatic
     Dosage: UNK
     Route: 048
     Dates: start: 201908, end: 201912
  2. KISQALI [Suspect]
     Active Substance: RIBOCICLIB
     Dosage: 600 MG, QD
     Route: 048
     Dates: start: 202012, end: 202103
  3. KISQALI [Suspect]
     Active Substance: RIBOCICLIB
     Dosage: 400 MG, QD (2 TABLETS)
     Route: 048
     Dates: start: 202103
  4. KISQALI [Suspect]
     Active Substance: RIBOCICLIB
     Dosage: 2 DOSAGE FORM, QD (400 MG)
     Route: 048
     Dates: start: 202109
  5. FEMARA [Suspect]
     Active Substance: LETROZOLE
     Indication: Breast cancer
     Dosage: 2.5 MG, QD
     Route: 048
     Dates: start: 201908, end: 201912
  6. FULVESTRANT [Suspect]
     Active Substance: FULVESTRANT
     Indication: Breast cancer
     Dosage: UNK UNK, QMO
     Route: 030
     Dates: start: 202010
  7. LEVOTHYROXINE [Concomitant]
     Active Substance: LEVOTHYROXINE
     Indication: Hypothyroidism
     Dosage: 50 MG, QD (STARTED 2 YEARS AGO)
     Route: 048

REACTIONS (18)
  - Weight decreased [Unknown]
  - General physical health deterioration [Unknown]
  - Nasopharyngitis [Unknown]
  - Platelet count decreased [Recovering/Resolving]
  - White blood cell count decreased [Unknown]
  - Fatigue [Unknown]
  - Dry throat [Unknown]
  - Malaise [Unknown]
  - Headache [Unknown]
  - Haemoglobin decreased [Unknown]
  - Dry mouth [Unknown]
  - Red blood cell count decreased [Unknown]
  - Alopecia [Unknown]
  - Dehydration [Unknown]
  - Micturition urgency [Unknown]
  - Osteopenia [Unknown]
  - Anaemia [Unknown]
  - Dizziness [Unknown]

NARRATIVE: CASE EVENT DATE: 20210413
